FAERS Safety Report 10273282 (Version 1)
Quarter: 2014Q2

REPORT INFORMATION
  Report Type: Spontaneous
  Country: US (occurrence: None)
  Receive Date: 20140630
  Receipt Date: 20140630
  Transmission Date: 20141212
  Serious: Yes (Other)
  Sender: FDA-Public Use
  Company Number: None

PATIENT
  Age: 13 Year
  Sex: Male

DRUGS (1)
  1. REMICADE [Suspect]
     Indication: CROHN^S DISEASE
     Dosage: NOT SURE WHAT DOSE GIVEN IN PENNSYLVANIA

REACTIONS (5)
  - Dyspnoea [None]
  - Ocular hyperaemia [None]
  - Flushing [None]
  - Nausea [None]
  - Vomiting [None]
